FAERS Safety Report 11986742 (Version 1)
Quarter: 2016Q1

REPORT INFORMATION
  Report Type: Spontaneous
  Country: US (occurrence: US)
  Receive Date: 20160202
  Receipt Date: 20160202
  Transmission Date: 20160526
  Serious: No
  Sender: FDA-Public Use
  Company Number: US-UCBSA-2015006234

PATIENT
  Age: 55 Year
  Sex: Female

DRUGS (2)
  1. DIAZEPAM. [Concomitant]
     Active Substance: DIAZEPAM
     Indication: PRODUCT USED FOR UNKNOWN INDICATION
     Dosage: 3 TIMES A DAY
  2. KEPPRA [Suspect]
     Active Substance: LEVETIRACETAM
     Indication: SEIZURE
     Dosage: 20000 MGS A DAY

REACTIONS (6)
  - Malaise [Unknown]
  - Limited symptom panic attack [Unknown]
  - Tremor [Unknown]
  - Parosmia [Unknown]
  - Nervousness [Unknown]
  - Feeling abnormal [Unknown]
